FAERS Safety Report 12601161 (Version 1)
Quarter: 2016Q3

REPORT INFORMATION
  Report Type: Spontaneous
  Country: US (occurrence: US)
  Receive Date: 20160728
  Receipt Date: 20160728
  Transmission Date: 20161109
  Serious: No
  Sender: FDA-Public Use
  Company Number: US-ELI_LILLY_AND_COMPANY-US201607004564

PATIENT
  Age: 61 Year
  Sex: Male

DRUGS (4)
  1. ASPIRIN                            /00002701/ [Concomitant]
     Active Substance: ASPIRIN
     Dosage: SMALL DOSE
  2. AFRIN [Concomitant]
     Active Substance: OXYMETAZOLINE
     Dosage: UNK, PRN
  3. FORTEO [Suspect]
     Active Substance: TERIPARATIDE
     Indication: PELVIC FRACTURE
     Dosage: UNK, QD
     Route: 065
     Dates: start: 20160609
  4. FLONASE                            /00908302/ [Concomitant]
     Active Substance: MOMETASONE FUROATE

REACTIONS (2)
  - Off label use [Unknown]
  - Incorrect dose administered by device [Unknown]

NARRATIVE: CASE EVENT DATE: 20160609
